FAERS Safety Report 20553348 (Version 1)
Quarter: 2022Q1

REPORT INFORMATION
  Report Type: Spontaneous
  Country: GB (occurrence: GB)
  Receive Date: 20220304
  Receipt Date: 20220304
  Transmission Date: 20220423
  Serious: Yes (Other)
  Sender: FDA-Public Use
  Company Number: None

PATIENT
  Age: 83 Year
  Sex: Female
  Weight: 42 kg

DRUGS (19)
  1. BISOPROLOL [Suspect]
     Active Substance: BISOPROLOL
     Indication: Product used for unknown indication
     Dosage: 1.25 MILLIGRAM
     Dates: start: 20220223
  2. ACETYLCYSTEINE [Concomitant]
     Active Substance: ACETYLCYSTEINE
     Dosage: 1 DOSAGE FORM, QD
     Dates: start: 20211111
  3. AZELASTINE [Concomitant]
     Active Substance: AZELASTINE
     Dosage: ONE SPRAY INTO EACH NOSTRIL
     Dates: start: 20220112
  4. AZITHROMYCIN [Concomitant]
     Active Substance: AZITHROMYCIN
     Dosage: TAKE ON MONDAYS, WEDNESDAYS AND FRIDAYS
     Dates: start: 20220112, end: 20220114
  5. BUMETANIDE [Concomitant]
     Active Substance: BUMETANIDE
     Dosage: 1 DOSAGE FORM, QD,AT LUNCH TIME
     Dates: start: 20211111
  6. AMOXICILLIN\CLAVULANATE POTASSIUM [Concomitant]
     Active Substance: AMOXICILLIN\CLAVULANATE POTASSIUM
     Dosage: SPOON
     Dates: start: 20211202, end: 20211209
  7. DIAZEPAM [Concomitant]
     Active Substance: DIAZEPAM
     Dosage: 1 DOSAGE FORM, PRN
     Dates: start: 20220209, end: 20220216
  8. CALCIUM CARBONATE\CHOLECALCIFEROL [Concomitant]
     Active Substance: CALCIUM CARBONATE\CHOLECALCIFEROL
     Dosage: 1 DOSAGE FORM, BID
     Dates: start: 20211111
  9. FLUCLOXACILLIN [Concomitant]
     Active Substance: FLUCLOXACILLIN
     Dosage: 1 DOSAGE FORM, QID
     Dates: start: 20220124, end: 20220131
  10. FOLIC ACID [Concomitant]
     Active Substance: FOLIC ACID
     Dosage: 1 DOSAGE FORM, QD
     Dates: start: 20220125
  11. LANSOPRAZOLE [Concomitant]
     Active Substance: LANSOPRAZOLE
     Dosage: 1 DOSAGE FORM, QD
     Dates: start: 20211111
  12. POLYETHYLENE GLYCOL 3350\POTASSIUM CHLORIDE\SODIUM BICARBONATE\SODIUM [Concomitant]
     Active Substance: POLYETHYLENE GLYCOL 3350\POTASSIUM CHLORIDE\SODIUM BICARBONATE\SODIUM CHLORIDE
     Dosage: 1-2 DAILY, QD
     Dates: start: 20211111
  13. MORPHINE SULFATE [Concomitant]
     Active Substance: MORPHINE SULFATE
     Dosage: 2.5 OR 5MLS EVERY 4HRS , PRN
     Dates: start: 20220128
  14. NYSTATIN [Concomitant]
     Active Substance: NYSTATIN
     Dosage: 1 MILLILITER, QID
     Dates: start: 20220218, end: 20220219
  15. PREDNISOLONE [Concomitant]
     Active Substance: PREDNISOLONE
     Dosage: TAKE ON ALTERNATE DAYS
     Dates: start: 20211111
  16. SYMBICORT [Concomitant]
     Active Substance: BUDESONIDE\FORMOTEROL FUMARATE DIHYDRATE
     Dosage: 1 DOSAGE FORM, BID,PUFF
     Dates: start: 20211111
  17. VENTOLIN [Concomitant]
     Active Substance: ALBUTEROL SULFATE
     Dosage: 1-2 PUFFS , PRN
     Dates: start: 20211111
  18. ACETAMINOPHEN\CODEINE PHOSPHATE [Concomitant]
     Active Substance: ACETAMINOPHEN\CODEINE PHOSPHATE
     Dosage: 1-2 EVERY 4-6 HOURS UP TO MAXIMUM 8 IN 24 HOURS...
     Dates: start: 20211125
  19. ZEROCREAM [Concomitant]
     Dosage: APPLY TO DRY SKIN, PRN
     Dates: start: 20220131

REACTIONS (1)
  - Wheezing [Recovered/Resolved]

NARRATIVE: CASE EVENT DATE: 20220224
